FAERS Safety Report 22229661 (Version 1)
Quarter: 2023Q2

REPORT INFORMATION
  Report Type: Spontaneous
  Country: US (occurrence: US)
  Receive Date: 20230419
  Receipt Date: 20230419
  Transmission Date: 20230722
  Serious: No
  Sender: FDA-Public Use
  Company Number: US-ALLERGAN-2237941US

PATIENT
  Age: 51 Year
  Sex: Female
  Weight: 123.37 kg

DRUGS (1)
  1. RESTASIS [Suspect]
     Active Substance: CYCLOSPORINE
     Indication: Dry eye
     Dosage: 2 GTT, BID
     Dates: start: 2021, end: 20221113

REACTIONS (2)
  - Eyelid irritation [Recovering/Resolving]
  - Eyelids pruritus [Recovering/Resolving]

NARRATIVE: CASE EVENT DATE: 20221109
